FAERS Safety Report 5700488-X (Version None)
Quarter: 2008Q2

REPORT INFORMATION
  Report Type: 
  Country: None (occurrence: None)
  Receive Date: 20080410
  Receipt Date: 20080402
  Transmission Date: 20081010
  Serious: Yes (Other)
  Sender: FDA-Public Use
  Company Number: US-JNJFOC-20080401567

PATIENT
  Sex: Female
  Weight: 70.31 kg

DRUGS (5)
  1. DURAGESIC-100 [Suspect]
     Indication: PAIN
     Route: 062
  2. PREMARIN [Concomitant]
     Indication: HORMONE REPLACEMENT THERAPY
     Route: 048
  3. THYROID TAB [Concomitant]
     Indication: THYROID DISORDER
     Route: 048
  4. LASIX [Concomitant]
     Indication: DIURETIC THERAPY
     Route: 048
  5. MACROBID [Concomitant]
     Indication: BLADDER DISORDER
     Route: 048

REACTIONS (3)
  - APPLICATION SITE RASH [None]
  - INAPPROPRIATE SCHEDULE OF DRUG ADMINISTRATION [None]
  - SURGERY [None]
